FAERS Safety Report 8960724 (Version 2)
Quarter: 2013Q1

REPORT INFORMATION
  Report Type: Spontaneous
  Country: FR (occurrence: None)
  Receive Date: 20121130
  Receipt Date: 20121203
  Transmission Date: 20140127
  Serious: Yes (Hospitalization, Other)
  Sender: FDA-Public Use
  Company Number: ADR-2012-02145

PATIENT
  Age: 26 Year
  Sex: Female

DRUGS (1)
  1. LIORESAL [Suspect]

REACTIONS (6)
  - Disturbance in attention [None]
  - Anticonvulsant drug level decreased [None]
  - Drug interaction [None]
  - Convulsion [None]
  - Somnolence [None]
  - Communication disorder [None]
